FAERS Safety Report 8798789 (Version 3)
Quarter: 2013Q1

REPORT INFORMATION
  Report Type: Spontaneous
  Country: US (occurrence: US)
  Receive Date: 20120920
  Receipt Date: 20130117
  Transmission Date: 20140127
  Serious: Yes (Hospitalization, Other)
  Sender: FDA-Public Use
  Company Number: US-009507513-1203USA01083

PATIENT
  Sex: 0

DRUGS (6)
  1. FOSAMAX [Suspect]
     Indication: OSTEOPOROSIS
     Dosage: 10 MG, QD
     Route: 048
     Dates: start: 20010504
  2. FOSAMAX [Suspect]
     Indication: OSTEOPENIA
     Dosage: 70 MG, QW
     Route: 048
     Dates: start: 20010808, end: 2007
  3. SYNTHROID [Concomitant]
  4. ZOCOR [Concomitant]
     Route: 048
  5. LOPRESSOR [Concomitant]
  6. METOPROLOL [Concomitant]

REACTIONS (45)
  - Femur fracture [Unknown]
  - Femur fracture [Unknown]
  - Procedural intestinal perforation [Unknown]
  - Colectomy [Unknown]
  - Colostomy [Unknown]
  - Myocardial infarction [Unknown]
  - Implantable defibrillator insertion [Unknown]
  - Spinal fusion surgery [Unknown]
  - Tonsillectomy [Unknown]
  - Cystopexy [Unknown]
  - Appendicectomy [Unknown]
  - Hernia repair [Unknown]
  - Peripheral artery angioplasty [Unknown]
  - Haemorrhoid operation [Unknown]
  - Bandaemia [Unknown]
  - Acute respiratory failure [Unknown]
  - Lung infiltration [Unknown]
  - Atrial fibrillation [Unknown]
  - Low turnover osteopathy [Unknown]
  - Fall [Unknown]
  - Fall [Unknown]
  - Insomnia [Not Recovered/Not Resolved]
  - Depression [Not Recovered/Not Resolved]
  - Anxiety [Not Recovered/Not Resolved]
  - Endodontic procedure [Unknown]
  - Angina pectoris [Unknown]
  - Cardiac disorder [Unknown]
  - Cardiac failure congestive [Unknown]
  - Nephrolithiasis [Unknown]
  - Urinary tract infection [Not Recovered/Not Resolved]
  - Intervertebral disc degeneration [Unknown]
  - Lyme disease [Unknown]
  - Wrist fracture [Unknown]
  - Radius fracture [Unknown]
  - Fall [Unknown]
  - Migraine [Unknown]
  - Facial bones fracture [Unknown]
  - Excoriation [Unknown]
  - Lip injury [Unknown]
  - Traumatic haematoma [Unknown]
  - Soft tissue injury [Unknown]
  - Calcinosis [Unknown]
  - Hysterectomy [Unknown]
  - Headache [Unknown]
  - Flatulence [Unknown]
